FAERS Safety Report 6841519-3 (Version None)
Quarter: 2010Q3

REPORT INFORMATION
  Report Type: 
  Country: None (occurrence: None)
  Receive Date: 20100714
  Receipt Date: 20070711
  Transmission Date: 20110219
  Serious: No
  Sender: FDA-Public Use
  Company Number: US-PFIZER INC-2007055776

PATIENT
  Sex: Female
  Weight: 54.4 kg

DRUGS (4)
  1. CHANTIX [Suspect]
     Indication: SMOKING CESSATION THERAPY
     Dates: start: 20070119, end: 20070628
  2. ACTONEL [Concomitant]
  3. VYTORIN [Concomitant]
  4. CORTICOSTEROIDS [Concomitant]

REACTIONS (6)
  - ABNORMAL DREAMS [None]
  - DECREASED APPETITE [None]
  - MIDDLE INSOMNIA [None]
  - STRESS [None]
  - THROAT IRRITATION [None]
  - TOBACCO USER [None]
